FAERS Safety Report 8901810 (Version 1)
Quarter: 2012Q4

REPORT INFORMATION
  Report Type: Spontaneous
  Country: CN (occurrence: None)
  Receive Date: 20121105
  Receipt Date: 20121105
  Transmission Date: 20130627
  Serious: Yes (Hospitalization)
  Sender: FDA-Public Use
  Company Number: 7169733

PATIENT
  Age: 1 Year
  Sex: Female

DRUGS (1)
  1. EUTHYROX [Suspect]
     Indication: ACCIDENTAL DRUG INTAKE BY CHILD
     Route: 048
     Dates: start: 20121022, end: 20121022

REACTIONS (2)
  - Erythema [None]
  - Accidental exposure to product by child [None]
